FAERS Safety Report 14074426 (Version 2)
Quarter: 2018Q1

REPORT INFORMATION
  Report Type: Report from Study
  Country: GB (occurrence: GB)
  Receive Date: 20171010
  Receipt Date: 20180116
  Transmission Date: 20180508
  Serious: Yes (Hospitalization)
  Sender: FDA-Public Use
  Company Number: GB-JNJFOC-20171006555

PATIENT
  Age: 47 Year
  Sex: Male

DRUGS (1)
  1. STELARA [Suspect]
     Active Substance: USTEKINUMAB
     Indication: PSORIASIS
     Route: 058
     Dates: start: 20170701

REACTIONS (4)
  - Hepatic steatosis [Recovered/Resolved]
  - Mesenteric panniculitis [Recovered/Resolved]
  - Colitis ulcerative [Recovered/Resolved]
  - Kidney angiomyolipoma [Recovered/Resolved]

NARRATIVE: CASE EVENT DATE: 20170722
